FAERS Safety Report 6644469-0 (Version None)
Quarter: 2010Q1

REPORT INFORMATION
  Report Type: 
  Country: None (occurrence: None)
  Receive Date: 20100317
  Receipt Date: 20100222
  Transmission Date: 20100710
  Serious: Yes (Other)
  Sender: FDA-Public Use
  Company Number: JP-SOLVAY-00310001176

PATIENT

DRUGS (1)
  1. LUVOX [Suspect]
     Indication: DEPRESSION
     Dosage: 25 MILLIGRAM(S), ORAL
     Route: 048

REACTIONS (1)
  - CONVULSION [None]
